FAERS Safety Report 8784241 (Version 1)
Quarter: 2012Q4

REPORT INFORMATION
  Report Type: 
  Country: FR (occurrence: FR)
  Receive Date: 20120913
  Receipt Date: 20120913
  Transmission Date: 20130627
  Serious: Yes (Hospitalization)
  Sender: FDA-Public Use
  Company Number: FR-EISAI INC-E2090-02298-SPO-FR

PATIENT
  Sex: Male

DRUGS (3)
  1. ZONEGRAN [Suspect]
     Indication: DRUG USE FOR UNKNOWN INDICATION
     Dosage: 500 mg daily
     Route: 048
  2. ZONEGRAN [Suspect]
     Dosage: 500 mg/day
     Route: 048
     Dates: start: 201209
  3. TRILEPTAL [Suspect]
     Indication: DRUG USE FOR UNKNOWN INDICATION
     Dosage: unknown
     Route: 048

REACTIONS (2)
  - Delirium [Unknown]
  - Psychotic disorder [Unknown]
